FAERS Safety Report 4767544-4 (Version None)
Quarter: 2005Q3

REPORT INFORMATION
  Report Type: 
  Country: None (occurrence: None)
  Receive Date: 20050913
  Receipt Date: 20050311
  Transmission Date: 20060218
  Serious: Yes (Hospitalization)
  Sender: FDA-Public Use
  Company Number: US-MERCK-0503USA02750

PATIENT
  Age: 66 Year
  Sex: Male
  Weight: 91 kg

DRUGS (27)
  1. VIOXX [Suspect]
     Indication: OSTEOARTHRITIS
     Route: 048
     Dates: start: 20000309, end: 20040901
  2. ZOCOR [Concomitant]
     Route: 048
     Dates: end: 20041201
  3. TENORMIN [Concomitant]
     Route: 048
  4. MAXZIDE [Concomitant]
     Route: 048
  5. HYDROCORTISONE [Concomitant]
     Route: 065
  6. ALLEGRA [Concomitant]
     Route: 065
  7. ASPIRIN [Concomitant]
     Route: 065
  8. AUGMENTIN [Concomitant]
     Route: 065
  9. CARBIDOPA [Concomitant]
     Route: 065
  10. CEPHALEXIN [Concomitant]
     Route: 065
  11. DENAVIR [Concomitant]
     Route: 065
  12. FLONASE [Concomitant]
     Route: 065
  13. GUAIFENEX [Concomitant]
     Route: 065
  14. HYDROCODONE BITARTRATE [Concomitant]
     Route: 065
  15. IMIPRAMINE HYDROCHLORIDE [Concomitant]
     Route: 065
  16. NEURONTIN [Concomitant]
     Route: 065
  17. NITROQUICK [Concomitant]
     Route: 065
  18. NULYTELY [Concomitant]
     Route: 065
  19. ORPHENADRINE [Concomitant]
     Route: 065
  20. PENLAC [Concomitant]
     Route: 065
  21. PLAVIX [Concomitant]
     Route: 065
  22. PREDNISONE [Concomitant]
     Route: 065
  23. PROTONIX [Concomitant]
     Route: 065
  24. SKELAXIN [Concomitant]
     Route: 065
  25. TEMAZEPAM [Concomitant]
     Route: 065
  26. ZITHROMAX [Concomitant]
     Route: 065
  27. [THERAPY UNSPECIFIED] [Concomitant]
     Route: 065

REACTIONS (19)
  - ACUTE MYOCARDIAL INFARCTION [None]
  - ANGINA PECTORIS [None]
  - AORTIC VALVE STENOSIS [None]
  - ARTHRALGIA [None]
  - ATRIOVENTRICULAR BLOCK FIRST DEGREE [None]
  - CARPAL TUNNEL SYNDROME [None]
  - CORONARY ARTERY DISEASE [None]
  - DEFORMITY [None]
  - DYSPEPSIA [None]
  - FLATULENCE [None]
  - GASTROOESOPHAGEAL REFLUX DISEASE [None]
  - HAEMATOMA INFECTION [None]
  - HERPES SIMPLEX [None]
  - HYPERTENSION [None]
  - MAJOR DEPRESSION [None]
  - NEUROPATHY [None]
  - NEUROPATHY PERIPHERAL [None]
  - SINUS BRADYCARDIA [None]
  - URINARY TRACT INFECTION [None]
